FAERS Safety Report 4862439-X (Version None)
Quarter: 2005Q4

REPORT INFORMATION
  Report Type: 
  Country: None (occurrence: None)
  Receive Date: 20051221
  Receipt Date: 20051212
  Transmission Date: 20060501
  Serious: Yes (Life-Threatening)
  Sender: FDA-Public Use
  Company Number: PHFR2005GB04019

PATIENT
  Age: 50 Year
  Sex: Female

DRUGS (4)
  1. CLOZAPINE [Suspect]
     Indication: SCHIZOPHRENIA
     Dosage: 400 MG/DAY
     Route: 048
     Dates: start: 19990101, end: 20050925
  2. PAROXETINE HCL [Concomitant]
     Dosage: 30 MG/DAY
     Route: 048
     Dates: start: 19990901
  3. KWELLS [Concomitant]
     Indication: SALIVARY HYPERSECRETION
     Dosage: UNK, TID
     Route: 048
  4. AMISULPRIDE [Suspect]
     Indication: SCHIZOPHRENIA
     Dosage: 400 MG/DAY
     Route: 048
     Dates: start: 20010801

REACTIONS (2)
  - BLOOD TEST ABNORMAL [None]
  - BREAST CANCER [None]
